FAERS Safety Report 9456424 (Version 1)
Quarter: 2013Q3

REPORT INFORMATION
  Report Type: Spontaneous
  Country: US (occurrence: US)
  Receive Date: 20130813
  Receipt Date: 20130813
  Transmission Date: 20140515
  Serious: Yes (Other)
  Sender: FDA-Public Use
  Company Number: US-BAYER-2013-095552

PATIENT
  Sex: Female

DRUGS (2)
  1. NATAZIA [Suspect]
     Indication: MENORRHAGIA
     Dosage: UNK
     Dates: end: 201211
  2. NATAZIA [Suspect]
     Indication: MIGRAINE

REACTIONS (4)
  - Hysterectomy [None]
  - Migraine [None]
  - Drug withdrawal syndrome [None]
  - Off label use [None]
